FAERS Safety Report 6087216-6 (Version None)
Quarter: 2009Q1

REPORT INFORMATION
  Report Type: 
  Country: None (occurrence: None)
  Receive Date: 20090219
  Receipt Date: 20090219
  Transmission Date: 20090719
  Serious: No
  Sender: FDA-Public Use
  Company Number: None

PATIENT
  Age: 26 Year
  Sex: Male

DRUGS (1)
  1. AZITHROMYCIN [Suspect]
     Indication: CHLAMYDIAL INFECTION
     Dosage: 1 GM PO
     Route: 048
     Dates: start: 20070308, end: 20070308

REACTIONS (3)
  - CHLAMYDIA IDENTIFICATION TEST POSITIVE [None]
  - PRODUCT QUALITY ISSUE [None]
  - TREATMENT FAILURE [None]
